FAERS Safety Report 23591204 (Version 1)
Quarter: 2024Q1

REPORT INFORMATION
  Report Type: Spontaneous
  Country: CN (occurrence: CN)
  Receive Date: 20240304
  Receipt Date: 20240304
  Transmission Date: 20240410
  Serious: Yes (Life-Threatening, Other)
  Sender: FDA-Public Use
  Company Number: CN-PFIZER INC-PV202400028845

PATIENT
  Age: 36 Year
  Sex: Male

DRUGS (8)
  1. VORICONAZOLE [Interacting]
     Active Substance: VORICONAZOLE
     Indication: Pneumonia
     Dosage: 300 MG, 2X/DAY, (Q12H)
  2. VENETOCLAX [Interacting]
     Active Substance: VENETOCLAX
     Indication: Acute myeloid leukaemia
     Dosage: 100 MG, DAILY
  3. DECITABINE [Concomitant]
     Active Substance: DECITABINE
     Indication: Acute myeloid leukaemia
     Dosage: 40 MG, DAILY
  4. MEROPENEM [Concomitant]
     Active Substance: MEROPENEM
     Indication: Pneumonia
     Dosage: 1000 MG, 3X/DAY (Q8H)
  5. LINEZOLID [Concomitant]
     Active Substance: LINEZOLID
     Indication: Pneumonia
     Dosage: 600 MG, 2X/DAY (Q12H)
  6. ALLOPURINOL [Concomitant]
     Active Substance: ALLOPURINOL
     Dosage: UNK
     Route: 048
  7. SODIUM BICARBONATE [Concomitant]
     Active Substance: SODIUM BICARBONATE
     Dosage: UNK
     Route: 048
  8. TRETINOIN [Concomitant]
     Active Substance: TRETINOIN
     Indication: Acute myeloid leukaemia
     Dosage: 10 MG, DAILY

REACTIONS (2)
  - Tumour lysis syndrome [Recovered/Resolved]
  - Drug interaction [Recovered/Resolved]
